FAERS Safety Report 11559018 (Version 2)
Quarter: 2016Q1

REPORT INFORMATION
  Report Type: Spontaneous
  Country: LB (occurrence: LB)
  Receive Date: 20150928
  Receipt Date: 20160122
  Transmission Date: 20160525
  Serious: Yes (Hospitalization, Other)
  Sender: FDA-Public Use
  Company Number: LB-BAYER-2015-427322

PATIENT
  Age: 59 Year
  Sex: Female

DRUGS (1)
  1. STIVARGA [Suspect]
     Active Substance: REGORAFENIB
     Indication: COLORECTAL CANCER METASTATIC
     Dosage: UNK
     Route: 048
     Dates: start: 20150724

REACTIONS (4)
  - Speech disorder [None]
  - Cerebrovascular accident [None]
  - Colon cancer [None]
  - Deep vein thrombosis [None]

NARRATIVE: CASE EVENT DATE: 201601
